FAERS Safety Report 19981113 (Version 1)
Quarter: 2021Q4

REPORT INFORMATION
  Report Type: Spontaneous
  Country: US (occurrence: US)
  Receive Date: 20211021
  Receipt Date: 20211021
  Transmission Date: 20220303
  Serious: No
  Sender: FDA-Public Use
  Company Number: US-PFIZER INC-202101177388

PATIENT
  Age: 55 Year
  Sex: Female

DRUGS (2)
  1. IBRANCE [Suspect]
     Active Substance: PALBOCICLIB
     Indication: Breast cancer female
     Dosage: 75 MG
  2. IBRANCE [Suspect]
     Active Substance: PALBOCICLIB
     Indication: Breast cancer female

REACTIONS (5)
  - Circumstance or information capable of leading to medication error [Unknown]
  - Alopecia [Unknown]
  - Diarrhoea [Unknown]
  - Drug intolerance [Unknown]
  - Red blood cell count decreased [Unknown]
